FAERS Safety Report 18992826 (Version 3)
Quarter: 2021Q2

REPORT INFORMATION
  Report Type: Spontaneous
  Country: BG (occurrence: BG)
  Receive Date: 20210310
  Receipt Date: 20210422
  Transmission Date: 20210717
  Serious: Yes (Hospitalization, Other)
  Sender: FDA-Public Use
  Company Number: BG-ALXN-A202103076

PATIENT
  Age: 13 Year
  Sex: Female
  Weight: 46.3 kg

DRUGS (3)
  1. KANUMA [Suspect]
     Active Substance: SEBELIPASE ALFA
     Dosage: UNK
     Route: 065
     Dates: start: 20210215
  2. KANUMA [Suspect]
     Active Substance: SEBELIPASE ALFA
     Indication: LYSOSOMAL ACID LIPASE DEFICIENCY
     Dosage: 60 MG, Q2W (EVERY OTHER WEEK)
     Route: 042
     Dates: start: 20201021
  3. KANUMA [Suspect]
     Active Substance: SEBELIPASE ALFA
     Dosage: 60 MG, Q2W (EVERY OTHER WEEK)
     Route: 042
     Dates: start: 20210301

REACTIONS (7)
  - COVID-19 [Recovered/Resolved]
  - SARS-CoV-2 antibody test positive [Recovered/Resolved]
  - Thrombocytopenia [Recovered/Resolved]
  - Leukopenia [Recovered/Resolved]
  - Hypertension [Unknown]
  - Diarrhoea [Unknown]
  - Vomiting [Unknown]

NARRATIVE: CASE EVENT DATE: 20210224
